FAERS Safety Report 10234484 (Version 1)
Quarter: 2014Q2

REPORT INFORMATION
  Report Type: Spontaneous
  Country: IN (occurrence: IN)
  Receive Date: 20140613
  Receipt Date: 20140613
  Transmission Date: 20141212
  Serious: Yes (Death)
  Sender: FDA-Public Use
  Company Number: IN-009507513-1406IND004641

PATIENT
  Age: 61 Year
  Sex: Male
  Weight: 65 kg

DRUGS (1)
  1. JANUVIA [Suspect]
     Indication: DIABETES MELLITUS
     Dosage: 50 MG, QD
     Route: 048

REACTIONS (1)
  - Death [Fatal]
